FAERS Safety Report 15276404 (Version 1)
Quarter: 2018Q3

REPORT INFORMATION
  Report Type: Report from Study
  Country: CA (occurrence: CA)
  Receive Date: 20180814
  Receipt Date: 20180814
  Transmission Date: 20181010
  Serious: Yes (Other)
  Sender: FDA-Public Use
  Company Number: CA-JNJFOC-20180810666

PATIENT
  Age: 10 Year
  Sex: Male
  Weight: 49.4 kg

DRUGS (2)
  1. REMICADE [Suspect]
     Active Substance: INFLIXIMAB
     Indication: CROHN^S DISEASE
     Dosage: STRENGTH = 100 MG
     Route: 042
     Dates: start: 20170718
  2. METHOTREXATE. [Suspect]
     Active Substance: METHOTREXATE
     Indication: PRODUCT USED FOR UNKNOWN INDICATION
     Route: 065
     Dates: end: 201807

REACTIONS (4)
  - Vomiting [Unknown]
  - Crohn^s disease [Not Recovered/Not Resolved]
  - Nausea [Unknown]
  - Product use complaint [Unknown]

NARRATIVE: CASE EVENT DATE: 20180805
